FAERS Safety Report 9969857 (Version 1)
Quarter: 2014Q1

REPORT INFORMATION
  Report Type: Spontaneous
  Country: US (occurrence: None)
  Receive Date: 20140305
  Receipt Date: 20140305
  Transmission Date: 20141002
  Serious: Yes (Other)
  Sender: FDA-Public Use
  Company Number: None

PATIENT
  Age: 73 Year
  Sex: Female
  Weight: 61.24 kg

DRUGS (1)
  1. LEVOFLOXIN [Suspect]
     Indication: PNEUMONIA
     Dosage: ONE PILL QD ORAL 5 DAYS
     Route: 048

REACTIONS (1)
  - Arthralgia [None]
